FAERS Safety Report 25758421 (Version 1)
Quarter: 2025Q3

REPORT INFORMATION
  Report Type: Spontaneous
  Country: EU (occurrence: EU)
  Receive Date: 20250904
  Receipt Date: 20250904
  Transmission Date: 20251020
  Serious: Yes (Hospitalization)
  Sender: MERCK SHARP & DOHME LLC
  Company Number: None

PATIENT
  Age: 18 Month
  Sex: Female
  Weight: 10 kg

DRUGS (2)
  1. M-M-RVAXPRO [Suspect]
     Active Substance: MEASLES VIRUS STRAIN ENDERS^ ATTENUATED EDMONSTON LIVE ANTIGEN\MUMPS VIRUS STRAIN B LEVEL JERYL LYNN
     Indication: Prophylaxis
     Dates: start: 20241213, end: 20241213
  2. STERILE DILUENT (WATER) [Suspect]
     Active Substance: WATER

REACTIONS (1)
  - Febrile convulsion [Recovered/Resolved]

NARRATIVE: CASE EVENT DATE: 20241222
